FAERS Safety Report 8386874-0 (Version None)
Quarter: 2012Q2

REPORT INFORMATION
  Report Type: 
  Country: None (occurrence: None)
  Receive Date: 20120525
  Receipt Date: 20120516
  Transmission Date: 20120825
  Serious: Yes (Hospitalization, Other)
  Sender: FDA-Public Use
  Company Number: US-US-EMD SERONO, INC.-7060738

PATIENT
  Sex: Female

DRUGS (4)
  1. REBIF [Suspect]
     Route: 058
  2. BLOOD THINNERS [Concomitant]
     Indication: THROMBOSIS
  3. REBIF [Suspect]
     Indication: MULTIPLE SCLEROSIS
     Route: 058
     Dates: start: 20100219
  4. REBIF [Suspect]
     Route: 058

REACTIONS (9)
  - VASCULAR OCCLUSION [None]
  - KIDNEY INFECTION [None]
  - HAEMOGLOBIN DECREASED [None]
  - PULMONARY THROMBOSIS [None]
  - NASOPHARYNGITIS [None]
  - INJECTION SITE RASH [None]
  - INJECTION SITE HAEMATOMA [None]
  - HAEMATOCRIT DECREASED [None]
  - INJECTION SITE ERYTHEMA [None]
